FAERS Safety Report 15622650 (Version 2)
Quarter: 2019Q1

REPORT INFORMATION
  Report Type: Report from Study
  Country: IT (occurrence: IT)
  Receive Date: 20181115
  Receipt Date: 20190131
  Transmission Date: 20190417
  Serious: Yes (Other)
  Sender: FDA-Public Use
  Company Number: IT-TEVA-2018-IT-975029

PATIENT
  Age: 86 Year
  Sex: Male

DRUGS (9)
  1. PRAMIPEXOLE. [Suspect]
     Active Substance: PRAMIPEXOLE
     Indication: PARKINSON^S DISEASE
     Route: 065
     Dates: end: 20181008
  2. FINASTERIDE. [Concomitant]
     Active Substance: FINASTERIDE
     Route: 065
  3. MADOPAR 100 MG + 25 MG CAPSULE RIGIDE [Concomitant]
     Active Substance: BENSERAZIDE HYDROCHLORIDE\LEVODOPA
  4. OLANZAPINE. [Suspect]
     Active Substance: OLANZAPINE
     Indication: MANIA
     Dosage: 5 MILLIGRAM DAILY;
     Route: 048
     Dates: start: 20181003, end: 20181008
  5. SINEMET [Concomitant]
     Active Substance: CARBIDOPA\LEVODOPA
  6. JUMEX [Suspect]
     Active Substance: SELEGILINE HYDROCHLORIDE
     Indication: PARKINSON^S DISEASE
     Route: 048
  7. AMLODIPINE [Concomitant]
     Active Substance: AMLODIPINE BESYLATE
     Route: 065
  8. TAMSULOSIN HYDROCHLORIDE. [Concomitant]
     Active Substance: TAMSULOSIN HYDROCHLORIDE
     Route: 065
  9. ACETYLSALICYLIC ACID [Concomitant]
     Active Substance: ASPIRIN
     Dosage: 100 MILLIGRAM DAILY;
     Route: 048

REACTIONS (3)
  - Sopor [Recovering/Resolving]
  - Asthenia [Recovering/Resolving]
  - Confusional state [Recovering/Resolving]

NARRATIVE: CASE EVENT DATE: 20181008
